FAERS Safety Report 4615696-9 (Version None)
Quarter: 2005Q1

REPORT INFORMATION
  Report Type: 
  Country: None (occurrence: None)
  Receive Date: 20050317
  Receipt Date: 20050308
  Transmission Date: 20050727
  Serious: Yes (Hospitalization)
  Sender: FDA-Public Use
  Company Number: 2005UW02251

PATIENT
  Age: 79 Year
  Sex: Female
  Weight: 76 kg

DRUGS (5)
  1. IRESSA [Suspect]
     Indication: BRONCHIOLOALVEOLAR CARCINOMA
     Dosage: 250 MG DAILY PO
     Route: 048
     Dates: start: 20050103, end: 20050205
  2. IRESSA [Suspect]
     Indication: LUNG NEOPLASM MALIGNANT
     Dosage: 250 MG DAILY PO
     Route: 048
     Dates: start: 20050103, end: 20050205
  3. IRESSA [Suspect]
     Indication: SMALL CELL LUNG CANCER STAGE UNSPECIFIED
     Dosage: 250 MG DAILY PO
     Route: 048
     Dates: start: 20050103, end: 20050205
  4. TOPROL-XL [Concomitant]
  5. BENZONATATE [Concomitant]

REACTIONS (6)
  - DIARRHOEA [None]
  - HYPOXIA [None]
  - LUNG INFILTRATION [None]
  - PNEUMONIA [None]
  - PNEUMONITIS [None]
  - VOMITING [None]
